FAERS Safety Report 19435591 (Version 1)
Quarter: 2021Q2

REPORT INFORMATION
  Report Type: Spontaneous
  Country: US (occurrence: US)
  Receive Date: 20210618
  Receipt Date: 20210618
  Transmission Date: 20210717
  Serious: Yes (Hospitalization, Other)
  Sender: FDA-Public Use
  Company Number: US-MICRO LABS LIMITED-ML2021-01930

PATIENT
  Age: 65 Year
  Sex: Female

DRUGS (3)
  1. OLMESARTAN MEDOXOMIL. [Suspect]
     Active Substance: OLMESARTAN MEDOXOMIL
  2. VERAPAMIL HYDROCHLORIDE. [Suspect]
     Active Substance: VERAPAMIL HYDROCHLORIDE
  3. ATENOLOL. [Suspect]
     Active Substance: ATENOLOL

REACTIONS (4)
  - Hypotension [Unknown]
  - Toxicity to various agents [Unknown]
  - Bradycardia [Recovered/Resolved]
  - Shock [Unknown]
